FAERS Safety Report 15107112 (Version 13)
Quarter: 2018Q4

REPORT INFORMATION
  Report Type: Report from Study
  Country: US (occurrence: US)
  Receive Date: 20180704
  Receipt Date: 20181107
  Transmission Date: 20190204
  Serious: Yes (Hospitalization, Other)
  Sender: FDA-Public Use
  Company Number: US-GILEAD-2018-0327927

PATIENT
  Age: 67 Year
  Sex: Female
  Weight: 61.22 kg

DRUGS (8)
  1. AMBRISENTAN [Suspect]
     Active Substance: AMBRISENTAN
     Indication: PRODUCT USED FOR UNKNOWN INDICATION
     Dosage: 10 MG, QD
     Route: 065
     Dates: start: 20161013
  2. TYVASO [Concomitant]
     Active Substance: TREPROSTINIL
  3. COUMADIN [Concomitant]
     Active Substance: WARFARIN SODIUM
  4. REMODULIN [Suspect]
     Active Substance: TREPROSTINIL
     Indication: PULMONARY ARTERIAL HYPERTENSION
     Dosage: UNK
     Route: 042
  5. GABAPENTIN. [Suspect]
     Active Substance: GABAPENTIN
     Indication: PAIN IN EXTREMITY
     Dosage: UNK
     Route: 065
  6. DILTIAZEM. [Concomitant]
     Active Substance: DILTIAZEM
  7. REMODULIN [Suspect]
     Active Substance: TREPROSTINIL
     Dosage: 0.009 UG/KG, UNK
     Route: 058
     Dates: start: 20180910
  8. ADCIRCA [Concomitant]
     Active Substance: TADALAFIL

REACTIONS (36)
  - Malaise [Unknown]
  - Chest discomfort [Not Recovered/Not Resolved]
  - Pyrexia [Not Recovered/Not Resolved]
  - Eye infection bacterial [Not Recovered/Not Resolved]
  - Back pain [Not Recovered/Not Resolved]
  - Infusion site swelling [Not Recovered/Not Resolved]
  - Nausea [Not Recovered/Not Resolved]
  - Cough [Not Recovered/Not Resolved]
  - Colitis ulcerative [Not Recovered/Not Resolved]
  - Dyspepsia [Not Recovered/Not Resolved]
  - Somnolence [Not Recovered/Not Resolved]
  - Palpitations [Unknown]
  - Sinusitis [Unknown]
  - Pain in extremity [Unknown]
  - Arthralgia [Unknown]
  - Sneezing [Recovered/Resolved]
  - Muscular weakness [Not Recovered/Not Resolved]
  - Paraesthesia [Not Recovered/Not Resolved]
  - Product dose omission [Recovered/Resolved]
  - Joint swelling [Recovering/Resolving]
  - Hordeolum [Not Recovered/Not Resolved]
  - Infusion site pain [Not Recovered/Not Resolved]
  - Gastrooesophageal reflux disease [Not Recovered/Not Resolved]
  - Anaemia [Not Recovered/Not Resolved]
  - Eye pain [Not Recovered/Not Resolved]
  - Right ventricular failure [Unknown]
  - Pyrexia [Unknown]
  - Eye pruritus [Not Recovered/Not Resolved]
  - Abdominal discomfort [Not Recovered/Not Resolved]
  - Flushing [Not Recovered/Not Resolved]
  - Rhinorrhoea [Recovered/Resolved]
  - Drug hypersensitivity [Unknown]
  - Peripheral swelling [Not Recovered/Not Resolved]
  - Infusion site pain [Not Recovered/Not Resolved]
  - Pain in extremity [Not Recovered/Not Resolved]
  - Nasal congestion [Not Recovered/Not Resolved]

NARRATIVE: CASE EVENT DATE: 201803
